FAERS Safety Report 15256071 (Version 1)
Quarter: 2018Q3

REPORT INFORMATION
  Report Type: Spontaneous
  Country: US (occurrence: US)
  Receive Date: 20180718
  Receipt Date: 20180718
  Transmission Date: 20181010
  Serious: Yes (Disabling, Other)
  Sender: FDA-Public Use
  Company Number: None

PATIENT
  Age: 46 Year
  Sex: Male
  Weight: 75.15 kg

DRUGS (1)
  1. CIPRO [Suspect]
     Active Substance: CIPROFLOXACIN HYDROCHLORIDE
     Indication: PROSTATITIS
     Route: 048

REACTIONS (9)
  - Arthralgia [None]
  - Tendon pain [None]
  - Weight decreased [None]
  - Neuropathy peripheral [None]
  - Condition aggravated [None]
  - Muscle atrophy [None]
  - Food allergy [None]
  - Insomnia [None]
  - Chest discomfort [None]

NARRATIVE: CASE EVENT DATE: 20180215
